FAERS Safety Report 8836352 (Version 1)
Quarter: 2012Q4

REPORT INFORMATION
  Report Type: 
  Country: US (occurrence: US)
  Receive Date: 20121011
  Receipt Date: 20121011
  Transmission Date: 20130627
  Serious: No
  Sender: FDA-Public Use
  Company Number: US-ASTRAZENECA-2012SE76234

PATIENT
  Age: 51 Year
  Sex: Female
  Weight: 89.8 kg

DRUGS (4)
  1. SEROQUEL [Suspect]
     Indication: DEPRESSION
     Route: 048
  2. SEROQUEL [Suspect]
     Indication: DEPRESSION
     Route: 048
     Dates: end: 201207
  3. METFORMIN [Concomitant]
     Indication: DIABETES MELLITUS
  4. THYROID MEDICATIONS [Concomitant]

REACTIONS (6)
  - Pain in extremity [Unknown]
  - Thinking abnormal [Unknown]
  - Insomnia [Unknown]
  - Pain [Unknown]
  - Drug dose omission [Unknown]
  - Off label use [Unknown]
